FAERS Safety Report 9983955 (Version 2)
Quarter: 2014Q1

REPORT INFORMATION
  Report Type: Report from Study
  Country: PR (occurrence: PR)
  Receive Date: 20140307
  Receipt Date: 20140307
  Transmission Date: 20141002
  Serious: No
  Sender: FDA-Public Use
  Company Number: PR-ABBVIE-13P-131-1094635-00

PATIENT
  Age: 53 Year
  Sex: Female
  Weight: 129.39 kg

DRUGS (6)
  1. HUMIRA [Suspect]
     Indication: PSORIASIS
     Route: 058
     Dates: start: 201208
  2. HUMIRA [Suspect]
     Route: 058
  3. GLIPIZIDE [Concomitant]
     Indication: DIABETES MELLITUS
     Route: 048
     Dates: start: 2005
  4. VASOTEC [Concomitant]
     Indication: HYPERTENSION
     Route: 048
     Dates: start: 2005
  5. LASIX [Concomitant]
     Indication: HYPERTENSION
     Route: 048
     Dates: start: 2005
  6. UNKNOWN MIX SYRUP [Concomitant]

REACTIONS (2)
  - Platelet count decreased [Recovered/Resolved]
  - Asthma [Recovered/Resolved]
